FAERS Safety Report 4501436-0 (Version None)
Quarter: 2004Q4

REPORT INFORMATION
  Report Type: 
  Country: None (occurrence: None)
  Receive Date: 20041110
  Receipt Date: 20041025
  Transmission Date: 20050328
  Serious: Yes (Death, Hospitalization, Other)
  Sender: FDA-Public Use
  Company Number: 2004US001298

PATIENT
  Age: 40 Year
  Sex: Female

DRUGS (1)
  1. PROGRAF [Suspect]
     Indication: LIVER TRANSPLANT
     Dosage: 4.00 MG, BID; 4.00 MG, BID

REACTIONS (11)
  - CEREBRAL DISORDER [None]
  - CEREBRAL HAEMORRHAGE [None]
  - COMA [None]
  - DRUG TOXICITY [None]
  - GENERAL PHYSICAL HEALTH DETERIORATION [None]
  - HAEMATOMA [None]
  - IMMUNOSUPPRESSANT DRUG LEVEL INCREASED [None]
  - LEUKOENCEPHALOPATHY [None]
  - LIVER TRANSPLANT REJECTION [None]
  - NECROSIS [None]
  - POST PROCEDURAL HAEMORRHAGE [None]
